FAERS Safety Report 26163937 (Version 1)
Quarter: 2025Q4

REPORT INFORMATION
  Report Type: Spontaneous
  Country: US (occurrence: US)
  Receive Date: 20251216
  Receipt Date: 20251216
  Transmission Date: 20260118
  Serious: No
  Sender: ALEXION PHARMACEUTICALS
  Company Number: US-AstraZeneca-CH-01014315AP

PATIENT
  Sex: Female

DRUGS (1)
  1. BREZTRI [Suspect]
     Active Substance: BUDESONIDE\FORMOTEROL\GLYCOPYRROLATE
     Dosage: 160 MICROGRAM
     Route: 065

REACTIONS (6)
  - Oral candidiasis [Unknown]
  - Product use issue [Unknown]
  - Device delivery system issue [Unknown]
  - Device ineffective [Unknown]
  - Wrong technique in device usage process [Unknown]
  - Chronic obstructive pulmonary disease [Unknown]
